FAERS Safety Report 4802702-1 (Version None)
Quarter: 2005Q4

REPORT INFORMATION
  Report Type: 
  Country: None (occurrence: None)
  Receive Date: 20051014
  Receipt Date: 20050805
  Transmission Date: 20060501
  Serious: Yes (Hospitalization)
  Sender: FDA-Public Use
  Company Number: 2005112345

PATIENT
  Sex: Female

DRUGS (6)
  1. NEURONTIN [Suspect]
     Indication: ILL-DEFINED DISORDER
     Dosage: (1 IN 1 D)
     Dates: start: 20050612, end: 20050612
  2. COREG [Suspect]
     Indication: ILL-DEFINED DISORDER
     Dosage: 25MG (25MG, 1 IN 1 D) ORAL
     Route: 048
     Dates: start: 20050612, end: 20050612
  3. ALDACTONE [Suspect]
     Indication: ILL-DEFINED DISORDER
     Dosage: (1 IN 1 D)
     Dates: start: 20050612, end: 20050612
  4. VASOTEC [Suspect]
     Indication: ILL-DEFINED DISORDER
     Dosage: (1 IN 1 D)
     Dates: start: 20050612, end: 20050612
  5. TOPROL-XL [Suspect]
     Indication: ILL-DEFINED DISORDER
     Dates: end: 20050612
  6. INSULIN [Suspect]
     Indication: ILL-DEFINED DISORDER

REACTIONS (6)
  - DIZZINESS [None]
  - HEADACHE [None]
  - HYPOTENSION [None]
  - MEDICATION ERROR [None]
  - SWELLING [None]
  - VISION BLURRED [None]
